FAERS Safety Report 6151729-9 (Version None)
Quarter: 2009Q2

REPORT INFORMATION
  Report Type: 
  Country: None (occurrence: None)
  Receive Date: 20090410
  Receipt Date: 20090403
  Transmission Date: 20091009
  Serious: Yes (Death)
  Sender: FDA-Public Use
  Company Number: A0776000A

PATIENT
  Age: 66 Year
  Sex: Female
  Weight: 81.8 kg

DRUGS (1)
  1. AVANDIA [Suspect]
     Indication: DIABETES MELLITUS
     Dosage: 4MG PER DAY
     Route: 048
     Dates: start: 20061101, end: 20070201

REACTIONS (4)
  - ARTERIOSCLEROSIS [None]
  - CARDIAC FAILURE CONGESTIVE [None]
  - HEART INJURY [None]
  - MYOCARDIAL INFARCTION [None]
